FAERS Safety Report 9277550 (Version 2)
Quarter: 2013Q2

REPORT INFORMATION
  Report Type: Report from Study
  Country: DK (occurrence: DK)
  Receive Date: 20130508
  Receipt Date: 20130514
  Transmission Date: 20140414
  Serious: Yes (Hospitalization)
  Sender: FDA-Public Use
  Company Number: DK-JNJFOC-20130417512

PATIENT
  Age: 16 Year
  Sex: Female
  Weight: 54 kg

DRUGS (4)
  1. REMICADE [Suspect]
     Indication: CROHN^S DISEASE
     Route: 042
     Dates: start: 20110905, end: 20120402
  2. TACROLIMUS [Concomitant]
     Route: 065
  3. PREDNISONE [Concomitant]
     Route: 065
  4. MYCOPHENOLATE MOFETIL [Concomitant]
     Route: 065

REACTIONS (1)
  - Dehydration [Recovered/Resolved]
